FAERS Safety Report 4992978-2 (Version None)
Quarter: 2006Q2

REPORT INFORMATION
  Report Type: 
  Country: None (occurrence: None)
  Receive Date: 20060504
  Receipt Date: 20050427
  Transmission Date: 20061013
  Serious: Yes (Hospitalization, Disabling)
  Sender: FDA-Public Use
  Company Number: US-MERCK-0505USA00273

PATIENT
  Age: 48 Year
  Sex: Male
  Weight: 95 kg

DRUGS (9)
  1. VIOXX [Suspect]
     Indication: ARTHRALGIA
     Route: 048
     Dates: start: 19990101, end: 20010101
  2. VIOXX [Suspect]
     Indication: BACK PAIN
     Route: 048
     Dates: start: 19990101, end: 20010101
  3. VICODIN [Concomitant]
     Route: 065
     Dates: start: 20010101, end: 20010501
  4. ANCEF [Concomitant]
     Route: 065
  5. TORADOL [Concomitant]
     Route: 065
     Dates: start: 19980401, end: 20050201
  6. AMBIEN [Concomitant]
     Route: 065
  7. CLARITIN [Concomitant]
     Route: 065
  8. SORBITOL [Concomitant]
     Route: 065
  9. LACTAID CAPLETS [Concomitant]
     Route: 065

REACTIONS (9)
  - ACUTE MYOCARDIAL INFARCTION [None]
  - BLOOD CHOLESTEROL INCREASED [None]
  - BLOOD TRIGLYCERIDES INCREASED [None]
  - CHEST PAIN [None]
  - DIABETES MELLITUS [None]
  - HYPERTENSION [None]
  - LACTOSE INTOLERANCE [None]
  - RENAL CELL CARCINOMA STAGE UNSPECIFIED [None]
  - RENAL MASS [None]
